FAERS Safety Report 11374729 (Version 1)
Quarter: 2015Q3

REPORT INFORMATION
  Report Type: Spontaneous
  Country: US (occurrence: None)
  Receive Date: 20150812
  Receipt Date: 20150812
  Transmission Date: 20151125
  Serious: Yes (Life-Threatening)
  Sender: FDA-Public Use
  Company Number: None

PATIENT
  Age: 55 Year
  Sex: Male
  Weight: 19.4 kg

DRUGS (14)
  1. CARBIDOPA-LEVODOPA [Concomitant]
     Active Substance: CARBIDOPA\LEVODOPA
  2. GEMFIBROZIL. [Concomitant]
     Active Substance: GEMFIBROZIL
  3. LISINOPRIL. [Concomitant]
     Active Substance: LISINOPRIL
  4. MULTIVITAMIN [Concomitant]
     Active Substance: VITAMINS
  5. OMEPRAZOLE. [Concomitant]
     Active Substance: OMEPRAZOLE
  6. SIMVASTATIN. [Concomitant]
     Active Substance: SIMVASTATIN
  7. TAMSULOSIN [Concomitant]
     Active Substance: TAMSULOSIN
  8. CLONAZEPAM. [Concomitant]
     Active Substance: CLONAZEPAM
  9. PSYLLIUM [Concomitant]
     Active Substance: PLANTAGO SEED
  10. TYSABRI [Suspect]
     Active Substance: NATALIZUMAB
     Indication: RELAPSING-REMITTING MULTIPLE SCLEROSIS
     Dosage: 300MG/115 ML EVERY 28 DAYS
     Route: 042
     Dates: start: 20071217, end: 20150626
  11. AMANTADINE [Concomitant]
     Active Substance: AMANTADINE
  12. METFORMIN [Concomitant]
     Active Substance: METFORMIN HYDROCHLORIDE
  13. VITAMIN D [Concomitant]
     Active Substance: CHOLECALCIFEROL
  14. SILDENAFIL. [Concomitant]
     Active Substance: SILDENAFIL

REACTIONS (1)
  - JC virus test positive [None]

NARRATIVE: CASE EVENT DATE: 20150723
